FAERS Safety Report 22260172 (Version 2)
Quarter: 2023Q2

REPORT INFORMATION
  Report Type: Spontaneous
  Country: CA (occurrence: CA)
  Receive Date: 20230427
  Receipt Date: 20230501
  Transmission Date: 20230721
  Serious: Yes (Other)
  Sender: FDA-Public Use
  Company Number: CA-AstraZeneca-2023A090690

PATIENT

DRUGS (3)
  1. TRASTUZUMAB DERUXTECAN [Suspect]
     Active Substance: TRASTUZUMAB DERUXTECAN
     Indication: Product used for unknown indication
     Dosage: UNK
     Route: 042
  2. OSIMERTINIB [Suspect]
     Active Substance: OSIMERTINIB
     Indication: Product used for unknown indication
     Dosage: UNK
     Route: 048
  3. DURVALUMAB [Suspect]
     Active Substance: DURVALUMAB
     Indication: Product used for unknown indication
     Dosage: UNK
     Route: 042

REACTIONS (8)
  - Disease progression [Unknown]
  - Lung neoplasm malignant [Unknown]
  - Cerebrovascular accident [Unknown]
  - Oesophageal carcinoma [Unknown]
  - Hepatitis B [Unknown]
  - Neutropenia [Unknown]
  - Hepatic enzyme increased [Unknown]
  - Inflammation [Unknown]
